FAERS Safety Report 25519268 (Version 2)
Quarter: 2025Q3

REPORT INFORMATION
  Report Type: Spontaneous
  Country: US (occurrence: US)
  Receive Date: 20250704
  Receipt Date: 20250811
  Transmission Date: 20251021
  Serious: No
  Sender: TAKEDA
  Company Number: US-TAKEDA-2025TUS059200

PATIENT
  Sex: Male
  Weight: 86 kg

DRUGS (3)
  1. ENTYVIO [Suspect]
     Active Substance: VEDOLIZUMAB
     Indication: Colitis ulcerative
     Dosage: 108 MILLIGRAM, Q2WEEKS
     Dates: start: 202503
  2. ENTYVIO [Suspect]
     Active Substance: VEDOLIZUMAB
  3. DUPIXENT [Concomitant]
     Active Substance: DUPILUMAB
     Indication: Eczema

REACTIONS (3)
  - No adverse event [Unknown]
  - Device leakage [Unknown]
  - Incorrect dose administered [Unknown]
